FAERS Safety Report 15890906 (Version 2)
Quarter: 2019Q1

REPORT INFORMATION
  Report Type: Spontaneous
  Country: FR (occurrence: FR)
  Receive Date: 20190130
  Receipt Date: 20190130
  Transmission Date: 20190417
  Serious: Yes (Death, Hospitalization)
  Sender: FDA-Public Use
  Company Number: PHHY2019FR020200

PATIENT
  Age: 19 Month
  Sex: Female
  Weight: 10 kg

DRUGS (9)
  1. BACTRIM [Concomitant]
     Active Substance: SULFAMETHOXAZOLE\TRIMETHOPRIM
     Indication: ANTIFUNGAL PROPHYLAXIS
     Route: 065
  2. FLUDARABINE [Suspect]
     Active Substance: FLUDARABINE PHOSPHATE
     Indication: ACUTE MYELOID LEUKAEMIA
     Route: 042
     Dates: start: 20060525, end: 20060529
  3. ARACYTINE [Suspect]
     Active Substance: CYTARABINE
     Indication: ACUTE MYELOID LEUKAEMIA
     Route: 042
     Dates: start: 20060524, end: 20060524
  4. ZOPHREN [Suspect]
     Active Substance: ONDANSETRON
     Indication: VOMITING
  5. DAUNOXOME [Suspect]
     Active Substance: DAUNORUBICIN CITRATE
     Indication: ACUTE LEUKAEMIA
     Route: 042
     Dates: start: 20060525, end: 20060525
  6. ZOPHREN [Suspect]
     Active Substance: ONDANSETRON
     Indication: NAUSEA
     Dosage: 4 MG, UNK
     Route: 048
     Dates: start: 20060523
  7. GRANOCYTE [Suspect]
     Active Substance: LENOGRASTIM
     Indication: AGRANULOCYTOSIS
     Route: 042
     Dates: start: 20060524, end: 20060529
  8. FASTURTEC [Suspect]
     Active Substance: RASBURICASE
     Indication: TUMOUR LYSIS SYNDROME
     Dosage: 1.5 MG, UNK
     Route: 042
     Dates: start: 20060523, end: 20060526
  9. PLITICAN [Concomitant]
     Active Substance: ALIZAPRIDE HYDROCHLORIDE
     Indication: PRODUCT USED FOR UNKNOWN INDICATION
     Dosage: UNK
     Route: 065

REACTIONS (9)
  - Product administration error [Fatal]
  - Respiratory distress [Fatal]
  - Aplasia [Recovered/Resolved]
  - Fatigue [Fatal]
  - Cardiac arrest [Fatal]
  - Chills [Fatal]
  - Pain [Fatal]
  - Vomiting [Fatal]
  - Accidental overdose [Fatal]

NARRATIVE: CASE EVENT DATE: 20060525
